FAERS Safety Report 5170319-8 (Version None)
Quarter: 2006Q4

REPORT INFORMATION
  Report Type: 
  Country: None (occurrence: None)
  Receive Date: 20061212
  Receipt Date: 20061130
  Transmission Date: 20070319
  Serious: Yes (Hospitalization)
  Sender: FDA-Public Use
  Company Number: GBWYE708630NOV06

PATIENT
  Sex: Female

DRUGS (7)
  1. ENBREL [Suspect]
     Indication: DRUG USE FOR UNKNOWN INDICATION
     Route: 058
     Dates: start: 20060926, end: 20061104
  2. METHOTREXATE [Suspect]
     Route: 048
     Dates: start: 20050815
  3. ACTONEL [Concomitant]
     Route: 048
  4. LANSOPRAZOLE [Concomitant]
     Indication: DRUG USE FOR UNKNOWN INDICATION
     Dosage: UNKNOWN
  5. ASPIRIN [Concomitant]
     Dosage: 75 MG, FREQUENCY UNSPECIFIED
     Route: 048
  6. BENDROFLUAZIDE [Concomitant]
     Dosage: 2.5 MG, FREQUENCY UNSPECIFIED
     Route: 048
  7. AMLODIPINE [Concomitant]
     Dosage: 5 MG, FREQUENCY UNSPECIFIED
     Route: 048

REACTIONS (1)
  - GASTROINTESTINAL CARCINOMA [None]
